FAERS Safety Report 7133896-3 (Version None)
Quarter: 2010Q4

REPORT INFORMATION
  Report Type: 
  Country: None (occurrence: None)
  Receive Date: 20101203
  Receipt Date: 20101110
  Transmission Date: 20110411
  Serious: Yes (Hospitalization, Other)
  Sender: FDA-Public Use
  Company Number: US-BAYER-201029022NA

PATIENT

DRUGS (7)
  1. YAZ [Suspect]
     Indication: MENSTRUAL CYCLE MANAGEMENT
     Route: 048
     Dates: start: 20061201, end: 20090901
  2. YAZ [Suspect]
  3. IBUPROFEN [Concomitant]
     Indication: PAIN
  4. UNKNOWN DRUG [Concomitant]
     Dates: start: 20020101
  5. ALLEGRA [Concomitant]
     Dates: start: 20040101
  6. MAXAIR [Concomitant]
     Route: 055
     Dates: start: 20040101
  7. VALTREX [Concomitant]

REACTIONS (4)
  - BILIARY COLIC [None]
  - BILIARY DYSKINESIA [None]
  - CHOLECYSTITIS CHRONIC [None]
  - INCISION SITE INFECTION [None]
